FAERS Safety Report 15804491 (Version 1)
Quarter: 2019Q1

REPORT INFORMATION
  Report Type: Spontaneous
  Country: US (occurrence: US)
  Receive Date: 20190109
  Receipt Date: 20190109
  Transmission Date: 20190417
  Serious: No
  Sender: FDA-Public Use
  Company Number: US-LEADING PHARMA, LLC-2061030

PATIENT
  Age: 40 Year
  Sex: Male

DRUGS (1)
  1. LORAZEPAM. [Suspect]
     Active Substance: LORAZEPAM
     Indication: AGGRESSION
     Route: 048

REACTIONS (4)
  - Therapy non-responder [Unknown]
  - Gait disturbance [Unknown]
  - Hypersomnia [Unknown]
  - Abdominal pain upper [Unknown]
